FAERS Safety Report 15972743 (Version 1)
Quarter: 2019Q1

REPORT INFORMATION
  Report Type: Spontaneous
  Country: GB (occurrence: GB)
  Receive Date: 20190216
  Receipt Date: 20190216
  Transmission Date: 20190418
  Serious: Yes (Congenital Anomaly, Other)
  Sender: FDA-Public Use
  Company Number: GB-TEVA-2019-GB-1012041

PATIENT
  Age: 64 Year
  Sex: Male
  Weight: 99.78 kg

DRUGS (5)
  1. DOXYCYCLINE. [Suspect]
     Active Substance: DOXYCYCLINE
     Indication: INFLUENZA
     Route: 048
     Dates: start: 20190108, end: 20190115
  2. DIHYDROCODEINE PHOSPHATE [Concomitant]
     Active Substance: DIHYDROCODEINE PHOSPHATE
  3. CELEBREX [Concomitant]
     Active Substance: CELECOXIB
  4. FENTANYL. [Concomitant]
     Active Substance: FENTANYL
     Dosage: 25 + 12
  5. GABAPENTIN. [Concomitant]
     Active Substance: GABAPENTIN

REACTIONS (3)
  - Skin atrophy [Not Recovered/Not Resolved]
  - Phimosis [Not Recovered/Not Resolved]
  - Penile necrosis [Not Recovered/Not Resolved]

NARRATIVE: CASE EVENT DATE: 20190118
